FAERS Safety Report 6967423-8 (Version None)
Quarter: 2010Q3

REPORT INFORMATION
  Report Type: 
  Country: None (occurrence: None)
  Receive Date: 20100907
  Receipt Date: 20100827
  Transmission Date: 20110219
  Serious: Yes (Hospitalization)
  Sender: FDA-Public Use
  Company Number: US-JNJFOC-20100901191

PATIENT
  Sex: Male
  Weight: 85.28 kg

DRUGS (4)
  1. FENTANYL CITRATE [Suspect]
     Indication: NEURALGIA
     Route: 062
  2. FENTANYL CITRATE [Suspect]
     Indication: PAIN
     Route: 062
  3. LYRICA [Concomitant]
     Indication: NEURALGIA
     Route: 048
  4. LORTAB [Concomitant]
     Indication: PAIN
     Route: 048

REACTIONS (6)
  - DIAPHRAGMATIC RUPTURE [None]
  - PNEUMOTHORAX TRAUMATIC [None]
  - RIB FRACTURE [None]
  - ROAD TRAFFIC ACCIDENT [None]
  - SPLENIC RUPTURE [None]
  - WEIGHT DECREASED [None]
